FAERS Safety Report 8737812 (Version 3)
Quarter: 2012Q4

REPORT INFORMATION
  Report Type: 
  Country: US (occurrence: US)
  Receive Date: 20120822
  Receipt Date: 20120912
  Transmission Date: 20130627
  Serious: Yes (Other)
  Sender: FDA-Public Use
  Company Number: PHEH2011US013215

PATIENT
  Sex: Female

DRUGS (9)
  1. EXFORGE [Suspect]
     Indication: HYPERTENSION
     Dosage: 5 aml/160 vals, QD
     Route: 048
  2. EXFORGE HCT [Suspect]
     Dosage: 1 DF, QD
     Dates: start: 20090622
  3. HYDROCODONE [Suspect]
     Indication: PAIN
     Dosage: 5-500 mg, UNK
  4. VITAMIN D [Concomitant]
  5. FISH OIL [Concomitant]
  6. OMEGA 3 [Concomitant]
  7. VITAMIN C [Concomitant]
  8. PROBIOTICS [Concomitant]
  9. CYMBALTA [Concomitant]

REACTIONS (10)
  - Thyroid neoplasm [Unknown]
  - Carpal tunnel syndrome [Unknown]
  - Blood pressure fluctuation [Unknown]
  - Rotator cuff syndrome [Unknown]
  - Fatigue [Not Recovered/Not Resolved]
  - Dyspnoea [Unknown]
  - Speech disorder [Unknown]
  - Musculoskeletal discomfort [Unknown]
  - Paraesthesia [Unknown]
  - Somnolence [Unknown]
